FAERS Safety Report 9340343 (Version 2)
Quarter: 2013Q3

REPORT INFORMATION
  Report Type: Spontaneous
  Country: GB (occurrence: None)
  Receive Date: 20130605
  Receipt Date: 20130702
  Transmission Date: 20140515
  Serious: Yes (Hospitalization)
  Sender: FDA-Public Use
  Company Number: AUR-APL-2013-04599

PATIENT
  Sex: 0

DRUGS (1)
  1. MIRTAZAPINE (MIRTAZAPINE) [Suspect]
     Indication: DEPRESSIVE SYMPTOM
     Dates: start: 2006

REACTIONS (5)
  - Mood altered [None]
  - Suicidal behaviour [None]
  - Sleep disorder [None]
  - Feeling abnormal [None]
  - General physical health deterioration [None]
